FAERS Safety Report 21205612 (Version 1)
Quarter: 2022Q3

REPORT INFORMATION
  Report Type: Report from Study
  Country: CA (occurrence: CA)
  Receive Date: 20220812
  Receipt Date: 20220812
  Transmission Date: 20221026
  Serious: Yes (Other)
  Sender: FDA-Public Use
  Company Number: CA-CELLTRION INC.-2022CA012910

PATIENT

DRUGS (3)
  1. RITUXIMAB [Suspect]
     Active Substance: RITUXIMAB
     Indication: B precursor type acute leukaemia
     Dosage: 375 MG/M2 (700MG IV X 8 DOSES) ON COURSE 2 DAYS 1, 8, 29, 36
     Route: 042
  2. RITUXIMAB [Suspect]
     Active Substance: RITUXIMAB
     Dosage: 375 MG/M2 (700MG IV X 8 DOSES) ON COURSE 3 DAYS 1, 11
     Route: 042
  3. RITUXIMAB [Suspect]
     Active Substance: RITUXIMAB
     Dosage: 375 MG/M2 (700MG IV X 8 DOSES) ON COURSE 4 DAYS 1, 8
     Route: 042

REACTIONS (2)
  - B precursor type acute leukaemia [Unknown]
  - Off label use [Unknown]
